FAERS Safety Report 4493341-3 (Version None)
Quarter: 2004Q4

REPORT INFORMATION
  Report Type: 
  Country: None (occurrence: None)
  Receive Date: 20041102
  Receipt Date: 20041027
  Transmission Date: 20050328
  Serious: Yes (Hospitalization, Other)
  Sender: FDA-Public Use
  Company Number: USA-2004-0017409

PATIENT
  Sex: Male

DRUGS (1)
  1. OXYCONTIN [Suspect]
     Dosage: MG

REACTIONS (5)
  - ACCIDENTAL OVERDOSE [None]
  - DRUG ABUSER [None]
  - HYPOTHERMIA [None]
  - LOSS OF CONSCIOUSNESS [None]
  - PNEUMONIA ASPIRATION [None]
